FAERS Safety Report 15538168 (Version 1)
Quarter: 2018Q4

REPORT INFORMATION
  Report Type: Report from Study
  Country: US (occurrence: US)
  Receive Date: 20181022
  Receipt Date: 20181022
  Transmission Date: 20190205
  Serious: Yes (Death, Life-Threatening, Hospitalization, Other)
  Sender: FDA-Public Use
  Company Number: US-EXELIXIS-CABO-18015880

PATIENT
  Age: 46 Year
  Sex: Male

DRUGS (17)
  1. AMLODIPINE [Concomitant]
     Active Substance: AMLODIPINE BESYLATE
  2. NYSTATIN. [Concomitant]
     Active Substance: NYSTATIN
  3. LEVOTHYROXINE. [Concomitant]
     Active Substance: LEVOTHYROXINE
  4. MORPHINE SULFATE. [Concomitant]
     Active Substance: MORPHINE SULFATE
     Dosage: UNK
  5. LISINOPRIL. [Concomitant]
     Active Substance: LISINOPRIL
  6. LOPERAMIDE [Concomitant]
     Active Substance: LOPERAMIDE
  7. LOMOTIL [Concomitant]
     Active Substance: ATROPINE SULFATE\DIPHENOXYLATE HYDROCHLORIDE
  8. NORCO [Concomitant]
     Active Substance: ACETAMINOPHEN\HYDROCODONE BITARTRATE
  9. RANITIDINE. [Concomitant]
     Active Substance: RANITIDINE
  10. AMLACTIN [Concomitant]
     Active Substance: AMMONIUM LACTATE
  11. ZOLEDRONIC ACID [Concomitant]
     Active Substance: ZOLEDRONIC ACID
  12. HYDROCORTISONE. [Concomitant]
     Active Substance: HYDROCORTISONE
  13. TRIAMCINOLON [Concomitant]
  14. COMETRIQ [Suspect]
     Active Substance: CABOZANTINIB S-MALATE
     Indication: MEDULLARY THYROID CANCER
     Dosage: 140 MG, QD
     Route: 048
     Dates: start: 20170722
  15. OMEPRAZOLE. [Concomitant]
     Active Substance: OMEPRAZOLE
  16. COMETRIQ [Suspect]
     Active Substance: CABOZANTINIB S-MALATE
     Dosage: 100 MG, QD
     Route: 048
     Dates: start: 20180806, end: 201809
  17. ALEVICYN ANTIPRURITIC GEL [Concomitant]

REACTIONS (6)
  - Mental status changes [Unknown]
  - Tumour haemorrhage [Not Recovered/Not Resolved]
  - Pleural effusion [Unknown]
  - Malignant neoplasm progression [Unknown]
  - Shock haemorrhagic [Fatal]
  - Oesophageal varices haemorrhage [Fatal]

NARRATIVE: CASE EVENT DATE: 201806
